FAERS Safety Report 7146343-2 (Version None)
Quarter: 2010Q4

REPORT INFORMATION
  Report Type: 
  Country: None (occurrence: None)
  Receive Date: 20101208
  Receipt Date: 20101130
  Transmission Date: 20110411
  Serious: Yes (Other)
  Sender: FDA-Public Use
  Company Number: US-AMGEN-USASP2010007069

PATIENT

DRUGS (1)
  1. ENBREL [Suspect]
     Indication: RHEUMATOID ARTHRITIS
     Dates: start: 20101108, end: 20101118

REACTIONS (11)
  - CHEST PAIN [None]
  - ERYTHEMA [None]
  - HYPOAESTHESIA [None]
  - INJECTION SITE DISCOLOURATION [None]
  - INJECTION SITE MACULE [None]
  - INJECTION SITE REACTION [None]
  - JOINT SWELLING [None]
  - OEDEMA PERIPHERAL [None]
  - PALPITATIONS [None]
  - PRESYNCOPE [None]
  - URTICARIA [None]
